FAERS Safety Report 20704622 (Version 2)
Quarter: 2022Q4

REPORT INFORMATION
  Report Type: Report from Study
  Country: IT (occurrence: IT)
  Receive Date: 20220413
  Receipt Date: 20221212
  Transmission Date: 20230112
  Serious: Yes (Death, Hospitalization, Other)
  Sender: FDA-Public Use
  Company Number: IT-ABBVIE-22K-083-4287862-00

PATIENT
  Age: 74 Year
  Sex: Female

DRUGS (4)
  1. AZITHROMYCIN [Suspect]
     Active Substance: AZITHROMYCIN
     Indication: COVID-19
     Dosage: UNK
     Route: 065
     Dates: start: 2020, end: 2020
  2. LOPINAVIR\RITONAVIR [Suspect]
     Active Substance: LOPINAVIR\RITONAVIR
     Indication: COVID-19
     Dosage: UNK, QD,200/50 MG
     Route: 048
     Dates: start: 2020, end: 2020
  3. COBICISTAT\DARUNAVIR ETHANOLATE [Suspect]
     Active Substance: COBICISTAT\DARUNAVIR ETHANOLATE
     Indication: COVID-19
     Dosage: UNK UNK, QD
     Route: 065
     Dates: start: 2020, end: 2020
  4. METOPROLOL [Suspect]
     Active Substance: METOPROLOL
     Indication: Ventricular tachycardia
     Dosage: UNK
     Route: 042

REACTIONS (4)
  - Electrocardiogram QT prolonged [Fatal]
  - Ventricular tachycardia [Fatal]
  - Drug ineffective [Fatal]
  - Off label use [Fatal]

NARRATIVE: CASE EVENT DATE: 20200101
